FAERS Safety Report 7232105-4 (Version None)
Quarter: 2011Q1

REPORT INFORMATION
  Report Type: 
  Country: None (occurrence: None)
  Receive Date: 20110119
  Receipt Date: 20110113
  Transmission Date: 20110831
  Serious: Yes (Disabling, Other)
  Sender: FDA-Public Use
  Company Number: GR-SHIRE-SPV1-2008-01615

PATIENT

DRUGS (4)
  1. ARANESP [Suspect]
     Indication: RENAL FAILURE
     Dosage: 100 UG, UNKNOWN
     Route: 042
     Dates: start: 20070501, end: 20080501
  2. XAGRID [Suspect]
     Indication: PRODUCT USED FOR UNKNOWN INDICATION
     Dosage: UNK, UNKNOWN
     Route: 065
     Dates: end: 20080101
  3. EPOETIN BETA [Suspect]
     Indication: RENAL FAILURE
     Dosage: 10000 IU, UNKNOWN
     Route: 065
     Dates: start: 20080501, end: 20080703
  4. ERYTHROPOIETIN HUMAN [Suspect]
     Indication: RENAL FAILURE CHRONIC
     Dosage: 10000 IU, UNKNOWN
     Route: 065
     Dates: start: 20080703

REACTIONS (2)
  - FIBROSIS [None]
  - HAEMATOCRIT DECREASED [None]
